FAERS Safety Report 11301777 (Version 1)
Quarter: 2015Q3

REPORT INFORMATION
  Report Type: Spontaneous
  Country: US (occurrence: US)
  Receive Date: 20150722
  Receipt Date: 20150722
  Transmission Date: 20151125
  Serious: No
  Sender: FDA-Public Use
  Company Number: US-ELI_LILLY_AND_COMPANY-US201007001424

PATIENT
  Age: 54 Year

DRUGS (1)
  1. HUMATROPE [Suspect]
     Active Substance: SOMATROPIN
     Dosage: 0.02 MG, UNK
     Dates: start: 20100702, end: 20100705

REACTIONS (8)
  - Headache [Unknown]
  - Dizziness [Unknown]
  - Malaise [Unknown]
  - Tremor [Unknown]
  - Nervousness [Unknown]
  - Somnolence [Unknown]
  - Asthenia [Unknown]
  - Sensory disturbance [Unknown]

NARRATIVE: CASE EVENT DATE: 20100702
